FAERS Safety Report 9938775 (Version 2)
Quarter: 2014Q2

REPORT INFORMATION
  Report Type: Spontaneous
  Country: US (occurrence: US)
  Receive Date: 20140303
  Receipt Date: 20140502
  Transmission Date: 20141212
  Serious: No
  Sender: FDA-Public Use
  Company Number: US-PFIZER INC-2014057482

PATIENT
  Age: 60 Year
  Sex: Female

DRUGS (2)
  1. CELEBREX [Suspect]
     Indication: BACK PAIN
     Dosage: 200 MG, DAILY (1WEEK)
     Route: 048
  2. ADOL [Concomitant]
     Dosage: 400 MG, 4X/DAY

REACTIONS (2)
  - Nerve injury [Unknown]
  - Drug ineffective [Unknown]
